FAERS Safety Report 7708812-3 (Version None)
Quarter: 2011Q3

REPORT INFORMATION
  Report Type: 
  Country: None (occurrence: None)
  Receive Date: 20110825
  Receipt Date: 20110816
  Transmission Date: 20111222
  Serious: Yes (Hospitalization)
  Sender: FDA-Public Use
  Company Number: JP-ASTRAZENECA-2011SE45655

PATIENT
  Age: 25847 Day
  Sex: Male

DRUGS (19)
  1. LIPITOR [Concomitant]
     Route: 048
     Dates: start: 20110407
  2. ISOSORBIDE DINITRATE [Concomitant]
     Indication: ACUTE CORONARY SYNDROME
     Route: 002
     Dates: start: 20110608
  3. AZD6140 [Suspect]
     Indication: ACUTE CORONARY SYNDROME
     Route: 048
     Dates: start: 20110407, end: 20110710
  4. AZD6140 [Suspect]
     Route: 048
     Dates: start: 20110713, end: 20110724
  5. PLACEBO [Suspect]
     Route: 048
     Dates: start: 20110714, end: 20110722
  6. PLACEBO [Suspect]
     Route: 048
     Dates: start: 20110729
  7. ASPIRIN [Suspect]
     Route: 048
     Dates: start: 20110714, end: 20110720
  8. BLODPRESS [Concomitant]
     Route: 048
     Dates: start: 20110407
  9. CARVEDILOL [Concomitant]
     Route: 048
     Dates: start: 20110407
  10. PLACEBO [Suspect]
     Indication: ACUTE CORONARY SYNDROME
     Route: 048
     Dates: start: 20110407, end: 20110708
  11. PROTECADIN [Concomitant]
     Indication: GASTRITIS PROPHYLAXIS
     Route: 048
     Dates: start: 20110407
  12. AZD6140 [Suspect]
     Route: 048
     Dates: start: 20110728
  13. BASEN OD [Concomitant]
     Route: 048
     Dates: start: 20110407
  14. ASPIRIN [Suspect]
     Route: 048
     Dates: start: 20110729
  15. ZOLPIDEM [Concomitant]
     Route: 048
     Dates: start: 20110409
  16. MYOCOR [Concomitant]
     Indication: ACUTE CORONARY SYNDROME
     Route: 055
     Dates: start: 20110411
  17. ASPIRIN [Suspect]
     Route: 048
     Dates: start: 20110408, end: 20110707
  18. ASPIRIN [Suspect]
     Indication: ACUTE CORONARY SYNDROME
     Route: 048
     Dates: start: 20110407, end: 20110407
  19. AMLODIN OD [Concomitant]
     Route: 048
     Dates: start: 20110407

REACTIONS (1)
  - PNEUMONIA CRYPTOCOCCAL [None]
